FAERS Safety Report 14079542 (Version 1)
Quarter: 2017Q4

REPORT INFORMATION
  Report Type: Spontaneous
  Country: GB (occurrence: GB)
  Receive Date: 20171012
  Receipt Date: 20171012
  Transmission Date: 20180321
  Serious: Yes (Life-Threatening, Hospitalization, Disabling)
  Sender: FDA-Public Use
  Company Number: GB-TEVA-814176ACC

PATIENT
  Age: 81 Year
  Sex: Female
  Weight: 70 kg

DRUGS (8)
  1. NASONEX [Concomitant]
     Active Substance: MOMETASONE FUROATE
  2. LOSARTAN POTASSIUM. [Concomitant]
     Active Substance: LOSARTAN POTASSIUM
  3. RANITIDINE. [Concomitant]
     Active Substance: RANITIDINE
  4. BISOPROLOL [Concomitant]
     Active Substance: BISOPROLOL
  5. CO-DYDRAMOL [Concomitant]
     Active Substance: ACETAMINOPHEN\DIHYDROCODEINE
  6. IBUPROFEN. [Concomitant]
     Active Substance: IBUPROFEN
  7. WARFARIN SODIUM. [Suspect]
     Active Substance: WARFARIN SODIUM
     Indication: ATRIAL FIBRILLATION
     Dosage: 3 MILLIGRAM DAILY;
     Route: 048
     Dates: start: 201606, end: 20170924
  8. BENDROFLUMETHIAZIDE [Concomitant]
     Active Substance: BENDROFLUMETHIAZIDE

REACTIONS (4)
  - Headache [Unknown]
  - Hemiparesis [Unknown]
  - Hypoaesthesia [Unknown]
  - Cerebral haemorrhage [Not Recovered/Not Resolved]

NARRATIVE: CASE EVENT DATE: 20170924
